FAERS Safety Report 24289847 (Version 1)
Quarter: 2024Q3

REPORT INFORMATION
  Report Type: Spontaneous
  Country: BR (occurrence: BR)
  Receive Date: 20240906
  Receipt Date: 20240906
  Transmission Date: 20241016
  Serious: Yes (Death, Other)
  Sender: GENMAB
  Company Number: BR-ABBVIE-5892029

PATIENT
  Sex: Male

DRUGS (1)
  1. EPKINLY [Suspect]
     Active Substance: EPCORITAMAB-BYSP
     Indication: Product used for unknown indication
     Dosage: FREQUENCY TEXT: CYCLE 1
     Route: 058

REACTIONS (2)
  - Intestinal ischaemia [Fatal]
  - Cytokine release syndrome [Recovered/Resolved]
